FAERS Safety Report 4894553-7 (Version None)
Quarter: 2006Q1

REPORT INFORMATION
  Report Type: 
  Country: None (occurrence: None)
  Receive Date: 20060127
  Receipt Date: 20051107
  Transmission Date: 20060701
  Serious: Yes (Death, Hospitalization)
  Sender: FDA-Public Use
  Company Number: US-MERCK-0511USA00877

PATIENT
  Age: 78 Year
  Sex: Male
  Weight: 79 kg

DRUGS (11)
  1. VIOXX [Suspect]
     Indication: ARTHRITIS
     Route: 048
     Dates: start: 20000401, end: 20031201
  2. ZAROXOLYN [Concomitant]
     Route: 048
  3. PLENDIL [Concomitant]
     Route: 048
  4. AMITRIPTYLINE HYDROCHLORIDE [Concomitant]
     Route: 048
  5. POTASSIUM CHLORIDE [Concomitant]
     Route: 048
  6. FUROSEMIDE [Concomitant]
     Route: 048
  7. TYLENOL-500 [Concomitant]
     Route: 048
  8. ASPIRIN [Concomitant]
     Route: 048
  9. ALEVE [Concomitant]
     Route: 048
  10. RANITIDINE [Concomitant]
     Route: 065
  11. FERROUS SULFATE [Concomitant]
     Route: 065

REACTIONS (5)
  - ASTHENIA [None]
  - CARDIO-RESPIRATORY ARREST [None]
  - CORONARY ARTERY DISEASE [None]
  - FALL [None]
  - GENERAL SYMPTOM [None]
